FAERS Safety Report 5931958-7 (Version None)
Quarter: 2008Q4

REPORT INFORMATION
  Report Type: 
  Country: None (occurrence: None)
  Receive Date: 20081027
  Receipt Date: 20081020
  Transmission Date: 20090506
  Serious: Yes (Hospitalization, Disabling)
  Sender: FDA-Public Use
  Company Number: PHHY2008CN25508

PATIENT

DRUGS (1)
  1. SANDOSTATIN LAR [Suspect]
     Indication: PORTAL HYPERTENSION
     Dosage: 20 MG DAILY, 5 INJECTION TOTAL
     Route: 030
     Dates: start: 20080612

REACTIONS (2)
  - BLOOD BILIRUBIN INCREASED [None]
  - PROTHROMBIN TIME PROLONGED [None]
